FAERS Safety Report 9325795 (Version 1)
Quarter: 2013Q2

REPORT INFORMATION
  Report Type: Spontaneous
  Country: DE (occurrence: DE)
  Receive Date: 20130604
  Receipt Date: 20130604
  Transmission Date: 20140414
  Serious: Yes (Other)
  Sender: FDA-Public Use
  Company Number: DE-ELI_LILLY_AND_COMPANY-DE201305007490

PATIENT
  Sex: Female

DRUGS (6)
  1. FORSTEO [Suspect]
     Indication: OSTEOPOROSIS
     Dosage: UNK, QD
     Route: 058
     Dates: start: 20130219
  2. VITAMIN D3 [Concomitant]
     Dosage: UNK, UNKNOWN
     Route: 065
  3. VIGANTOLETTEN [Concomitant]
     Dosage: UNK, UNKNOWN
     Route: 065
  4. MTX [Concomitant]
     Dosage: UNK, UNKNOWN
     Route: 065
  5. CORTISON [Concomitant]
     Dosage: UNK, UNKNOWN
     Route: 065
  6. MACROGOL [Concomitant]
     Dosage: UNK, UNKNOWN
     Route: 065

REACTIONS (4)
  - Thrombosis [Not Recovered/Not Resolved]
  - Hypotension [Not Recovered/Not Resolved]
  - Dizziness [Not Recovered/Not Resolved]
  - Fatigue [Not Recovered/Not Resolved]
